FAERS Safety Report 17330217 (Version 1)
Quarter: 2020Q1

REPORT INFORMATION
  Report Type: Spontaneous
  Country: US (occurrence: US)
  Receive Date: 20200127
  Receipt Date: 20200127
  Transmission Date: 20200409
  Serious: Yes (Other)
  Sender: FDA-Public Use
  Company Number: None

PATIENT
  Age: 54 Year
  Sex: Male
  Weight: 91.2 kg

DRUGS (9)
  1. OLUMIANT [Suspect]
     Active Substance: BARICITINIB
     Indication: RHEUMATOID ARTHRITIS
     Route: 048
     Dates: start: 20200103, end: 20200107
  2. DICLOFENAC TOPICAL 1% [Concomitant]
  3. ATORVASTATIN 40 MG [Concomitant]
     Active Substance: ATORVASTATIN
  4. TOPIRAMATE 100 MG [Concomitant]
     Active Substance: TOPIRAMATE
  5. FOLIC ACID 1 MG [Concomitant]
  6. SUMATRIPTAN 50 MG [Concomitant]
  7. METOPROLOL TARTRATE 25 MG [Concomitant]
     Active Substance: METOPROLOL TARTRATE
  8. BACLOFEN 10 MG [Concomitant]
     Active Substance: BACLOFEN
  9. METHOTREXATE 25 MG/ML [Concomitant]

REACTIONS (1)
  - Condition aggravated [None]

NARRATIVE: CASE EVENT DATE: 20200107
